FAERS Safety Report 8447859-9 (Version None)
Quarter: 2012Q2

REPORT INFORMATION
  Report Type: 
  Country: None (occurrence: None)
  Receive Date: 20120619
  Receipt Date: 20120612
  Transmission Date: 20120825
  Serious: Yes (Other)
  Sender: FDA-Public Use
  Company Number: US-PFIZER INC-2012125817

PATIENT
  Sex: Male
  Weight: 78 kg

DRUGS (6)
  1. LIPITOR [Suspect]
     Indication: BLOOD CHOLESTEROL INCREASED
     Dosage: 10 MG, DAILY
     Dates: start: 20040601
  2. LORATADINE [Concomitant]
     Indication: HYPERSENSITIVITY
     Dosage: 10 MG, DAILY
  3. LIFEPAK [Concomitant]
     Indication: MEDICAL DIET
     Dosage: UNK, DAILY
  4. ASPIRIN [Concomitant]
     Dosage: 81 MG, DAILY
  5. ATACAND [Concomitant]
     Indication: BLOOD PRESSURE INCREASED
     Dosage: 16 MG, DAILY
  6. GEMFIBROZIL [Concomitant]
     Indication: BLOOD TRIGLYCERIDES INCREASED
     Dosage: 600 MG, DAILY

REACTIONS (2)
  - LDL/HDL RATIO INCREASED [None]
  - PLATELET COUNT DECREASED [None]
